FAERS Safety Report 11661664 (Version 2)
Quarter: 2015Q4

REPORT INFORMATION
  Report Type: Spontaneous
  Country: US (occurrence: US)
  Receive Date: 20151026
  Receipt Date: 20151029
  Transmission Date: 20160304
  Serious: Yes (Other)
  Sender: FDA-Public Use
  Company Number: US-LUNDBECK-DKLU2005653

PATIENT
  Sex: Male

DRUGS (3)
  1. ONFI [Suspect]
     Active Substance: CLOBAZAM
     Indication: PRODUCT USED FOR UNKNOWN INDICATION
     Route: 065
  2. ONFI [Suspect]
     Active Substance: CLOBAZAM
     Route: 065
  3. ONFI [Suspect]
     Active Substance: CLOBAZAM
     Route: 065

REACTIONS (2)
  - Hypothermia [Recovered/Resolved]
  - Hypotension [Recovered/Resolved]
